FAERS Safety Report 8484795-6 (Version None)
Quarter: 2012Q3

REPORT INFORMATION
  Report Type: 
  Country: None (occurrence: None)
  Receive Date: 20120703
  Receipt Date: 20120625
  Transmission Date: 20120928
  Serious: Yes (Hospitalization)
  Sender: FDA-Public Use
  Company Number: US-BAYER-2012-063873

PATIENT
  Age: 37 Year
  Sex: Female
  Weight: 122.7 kg

DRUGS (5)
  1. XANAX [Concomitant]
  2. TYLENOL W/ CODEINE NO. 3 [Concomitant]
  3. HYDROCORTISONE W/PRAMOXINE [Concomitant]
  4. SYNTHROID [Concomitant]
  5. YAZ [Suspect]

REACTIONS (2)
  - PULMONARY EMBOLISM [None]
  - DEEP VEIN THROMBOSIS [None]
